FAERS Safety Report 24062422 (Version 2)
Quarter: 2024Q3

REPORT INFORMATION
  Report Type: Spontaneous
  Country: US (occurrence: US)
  Receive Date: 20240708
  Receipt Date: 20240916
  Transmission Date: 20241017
  Serious: No
  Sender: BAUSCH AND LOMB
  Company Number: US-BAUSCHBL-2024BNL029504

PATIENT
  Age: 72 Year
  Sex: Female

DRUGS (1)
  1. XIIDRA [Suspect]
     Active Substance: LIFITEGRAST
     Indication: Product used for unknown indication
     Route: 065

REACTIONS (9)
  - Limb injury [Unknown]
  - Product package associated injury [Unknown]
  - Eye irritation [Unknown]
  - Eye pain [Unknown]
  - Product container issue [Unknown]
  - Product delivery mechanism issue [Unknown]
  - Exposure via skin contact [Unknown]
  - Accidental exposure to product [Unknown]
  - Product use complaint [Unknown]
